FAERS Safety Report 24847577 (Version 1)
Quarter: 2025Q1

REPORT INFORMATION
  Report Type: Spontaneous
  Country: US (occurrence: US)
  Receive Date: 20250116
  Receipt Date: 20250116
  Transmission Date: 20250409
  Serious: No
  Sender: ROCHE
  Company Number: US-ROCHE-10000174865

PATIENT
  Sex: Female

DRUGS (1)
  1. XOLAIR [Suspect]
     Active Substance: OMALIZUMAB
     Indication: Idiopathic urticaria
     Dosage: STRENGTH: 300MG/2ML
     Route: 058
     Dates: start: 202411

REACTIONS (5)
  - Hypersensitivity [Unknown]
  - Gastrointestinal disorder [Unknown]
  - Erythema [Unknown]
  - Flushing [Unknown]
  - Lip swelling [Unknown]
